FAERS Safety Report 4424148-0 (Version None)
Quarter: 2004Q3

REPORT INFORMATION
  Report Type: 
  Country: None (occurrence: None)
  Receive Date: 20040810
  Receipt Date: 20040810
  Transmission Date: 20050211
  Serious: Yes (Other)
  Sender: FDA-Public Use
  Company Number: None

PATIENT
  Age: 33 Year
  Sex: Male
  Weight: 81.1939 kg

DRUGS (2)
  1. LARIAM [Suspect]
     Indication: MALARIA
     Dosage: 1 A WK
     Dates: start: 20030801
  2. MEFLOQUINE HCL [Suspect]
     Dates: start: 20030630

REACTIONS (1)
  - AMNESIA [None]
